FAERS Safety Report 15097628 (Version 2)
Quarter: 2018Q3

REPORT INFORMATION
  Report Type: Spontaneous
  Country: JP (occurrence: JP)
  Receive Date: 20180702
  Receipt Date: 20180802
  Transmission Date: 20181010
  Serious: Yes (Hospitalization)
  Sender: FDA-Public Use
  Company Number: JP-ACTELION-A-CH2017-152478

PATIENT
  Age: 70 Year
  Sex: Female

DRUGS (15)
  1. TRACLEER [Suspect]
     Active Substance: BOSENTAN
     Dosage: 62.5 MG, BID
     Route: 048
     Dates: start: 20140212, end: 20140309
  2. ANPLAG [Concomitant]
     Active Substance: SARPOGRELATE
  3. PLETAAL [Concomitant]
     Active Substance: CILOSTAZOL
  4. PROTOPIC [Concomitant]
     Active Substance: TACROLIMUS
  5. TRACLEER [Suspect]
     Active Substance: BOSENTAN
     Indication: SCLERODERMA ASSOCIATED DIGITAL ULCER
     Dosage: 125 MG, BID
     Route: 048
     Dates: start: 20140310
  6. GASMOTIN [Concomitant]
     Active Substance: MOSAPRIDE CITRATE
  7. URSO [Concomitant]
     Active Substance: URSODIOL
     Dosage: 200 MG, TID
     Route: 048
     Dates: start: 20140626
  8. REVATIO [Concomitant]
     Active Substance: SILDENAFIL CITRATE
  9. URSO [Concomitant]
     Active Substance: URSODIOL
     Dosage: 100 MG, TID
  10. FIBLAST [Concomitant]
  11. CARELOAD [Concomitant]
     Active Substance: BERAPROST SODIUM
  12. ADALAT [Concomitant]
     Active Substance: NIFEDIPINE
  13. PARIET [Concomitant]
     Active Substance: RABEPRAZOLE SODIUM
  14. U?PASTA [Concomitant]
  15. PLAVIX [Concomitant]
     Active Substance: CLOPIDOGREL BISULFATE

REACTIONS (8)
  - Gamma-glutamyltransferase increased [Unknown]
  - Dyslalia [Recovered/Resolved]
  - Alanine aminotransferase increased [Unknown]
  - Fine motor skill dysfunction [Recovered/Resolved]
  - Liver disorder [Unknown]
  - Cerebral arteriosclerosis [Recovered/Resolved]
  - Blood alkaline phosphatase increased [Unknown]
  - Cerebral infarction [Recovered/Resolved]

NARRATIVE: CASE EVENT DATE: 20160430
